FAERS Safety Report 8394659-4 (Version None)
Quarter: 2012Q2

REPORT INFORMATION
  Report Type: 
  Country: None (occurrence: None)
  Receive Date: 20120530
  Receipt Date: 20120523
  Transmission Date: 20120825
  Serious: Yes (Other)
  Sender: FDA-Public Use
  Company Number: US-PFIZER INC-2012125132

PATIENT
  Sex: Male
  Weight: 68.027 kg

DRUGS (2)
  1. ADVIL PM [Suspect]
     Indication: BACK PAIN
  2. ADVIL PM [Suspect]
     Indication: PAIN
     Dosage: UNK
     Route: 048
     Dates: start: 20120522, end: 20120523

REACTIONS (4)
  - HEADACHE [None]
  - LIP SWELLING [None]
  - HYPERSENSITIVITY [None]
  - ABDOMINAL PAIN UPPER [None]
